FAERS Safety Report 14562408 (Version 2)
Quarter: 2019Q1

REPORT INFORMATION
  Report Type: Spontaneous
  Country: DE (occurrence: DE)
  Receive Date: 20180222
  Receipt Date: 20190214
  Transmission Date: 20190417
  Serious: Yes (Other)
  Sender: FDA-Public Use
  Company Number: DE-AUROBINDO-AUR-APL-2018-009299

PATIENT

DRUGS (5)
  1. RITONAVIR. [Suspect]
     Active Substance: RITONAVIR
     Indication: HIV INFECTION
     Dosage: UNK
     Route: 065
  2. EMTRICITABINE [Suspect]
     Active Substance: EMTRICITABINE
     Indication: HIV INFECTION
     Dosage: UNK
     Route: 065
  3. TENOFOVIR DISOPROXIL [Suspect]
     Active Substance: TENOFOVIR DISOPROXIL
     Indication: HIV INFECTION
     Dosage: UNK
     Route: 065
  4. ATAZANAVIR SULFATE. [Suspect]
     Active Substance: ATAZANAVIR SULFATE
     Indication: HIV INFECTION
     Dosage: UNK
     Route: 065
  5. DARUNAVIR [Suspect]
     Active Substance: DARUNAVIR
     Indication: HIV INFECTION
     Dosage: UNK
     Route: 065

REACTIONS (3)
  - Viral mutation identified [Unknown]
  - Viraemia [Unknown]
  - HIV viraemia [Unknown]
